FAERS Safety Report 8688286 (Version 2)
Quarter: 2012Q4

REPORT INFORMATION
  Report Type: 
  Country: US (occurrence: US)
  Receive Date: 20120727
  Receipt Date: 20120830
  Transmission Date: 20130627
  Serious: Yes (Life-Threatening, Other)
  Sender: FDA-Public Use
  Company Number: US-ELI_LILLY_AND_COMPANY-US201207007329

PATIENT
  Sex: Female

DRUGS (2)
  1. LISPRO REGLISPRO [Suspect]
     Dosage: UNK, unknown
  2. LANTUS [Concomitant]

REACTIONS (4)
  - Brain injury [Unknown]
  - Anoxia [Unknown]
  - Memory impairment [Unknown]
  - Overdose [Unknown]
